FAERS Safety Report 11174237 (Version 1)
Quarter: 2015Q2

REPORT INFORMATION
  Report Type: Report from Study
  Country: AR (occurrence: AR)
  Receive Date: 20150609
  Receipt Date: 20150609
  Transmission Date: 20150821
  Serious: Yes (Other)
  Sender: FDA-Public Use
  Company Number: AR-BIOGENIDEC-2015BI036866

PATIENT
  Age: 60 Year
  Sex: Female

DRUGS (3)
  1. HYDROCORTISONE. [Concomitant]
     Active Substance: HYDROCORTISONE
  2. AVONEX [Suspect]
     Active Substance: INTERFERON BETA-1A
     Indication: MULTIPLE SCLEROSIS
     Route: 030
     Dates: start: 201309
  3. LEVOTHYROXINE [Concomitant]
     Active Substance: LEVOTHYROXINE

REACTIONS (1)
  - Thrombosis [Not Recovered/Not Resolved]

NARRATIVE: CASE EVENT DATE: 2015
